FAERS Safety Report 11366379 (Version 2)
Quarter: 2015Q3

REPORT INFORMATION
  Report Type: Spontaneous
  Country: US (occurrence: US)
  Receive Date: 20150811
  Receipt Date: 20150811
  Transmission Date: 20151125
  Serious: No
  Sender: FDA-Public Use
  Company Number: US-ELI_LILLY_AND_COMPANY-US201301001972

PATIENT
  Age: 72 Year
  Sex: Male

DRUGS (2)
  1. AXIRON [Suspect]
     Active Substance: TESTOSTERONE
     Indication: BLOOD TESTOSTERONE DECREASED
     Dosage: 30 MG, UNK
  2. CIALIS [Suspect]
     Active Substance: TADALAFIL
     Dosage: UNK

REACTIONS (2)
  - Drug ineffective [Unknown]
  - Dysgeusia [Unknown]
